FAERS Safety Report 13828947 (Version 1)
Quarter: 2017Q3

REPORT INFORMATION
  Report Type: Spontaneous
  Country: US (occurrence: US)
  Receive Date: 20170802
  Receipt Date: 20170802
  Transmission Date: 20171127
  Serious: No
  Sender: FDA-Public Use
  Company Number: None

PATIENT
  Age: 39 Year
  Sex: Female
  Weight: 58.5 kg

DRUGS (2)
  1. STRESS-DEFY [Concomitant]
  2. BOTOX [Suspect]
     Active Substance: ONABOTULINUMTOXINA
     Indication: SKIN WRINKLING
     Dates: start: 20170725, end: 20170725

REACTIONS (5)
  - Dysgeusia [None]
  - Diarrhoea [None]
  - Hot flush [None]
  - Anxiety [None]
  - Paraesthesia [None]

NARRATIVE: CASE EVENT DATE: 20170802
